FAERS Safety Report 9276563 (Version 1)
Quarter: 2013Q2

REPORT INFORMATION
  Report Type: Spontaneous
  Country: JP (occurrence: JP)
  Receive Date: 20130507
  Receipt Date: 20130507
  Transmission Date: 20140414
  Serious: Yes (Death, Hospitalization)
  Sender: FDA-Public Use
  Company Number: JP-NAPPMUNDI-GBR-2013-0013840

PATIENT
  Age: 83 Year
  Sex: Male

DRUGS (12)
  1. BUPRENORPHINE TRANSDERMAL SYSTEM [Suspect]
     Indication: BACK PAIN
     Dosage: 5 MCG, Q1H
     Route: 062
     Dates: start: 20130416
  2. BUPRENORPHINE TRANSDERMAL SYSTEM [Suspect]
     Dosage: 10 MCG, Q1H
     Route: 062
  3. BUPRENORPHINE TRANSDERMAL SYSTEM [Suspect]
     Dosage: 5 MCG, Q1H
     Route: 062
  4. DEZOLAM [Concomitant]
     Route: 048
  5. LOXONIN [Concomitant]
     Route: 048
  6. AZUCURENIN S [Concomitant]
     Route: 048
  7. LYRICA [Concomitant]
     Dosage: 150 MG, DAILY
     Route: 048
  8. CLARITIN                           /00917501/ [Concomitant]
     Indication: PNEUMONIA
     Route: 048
  9. LENDORMIN [Concomitant]
     Indication: PNEUMONIA
     Route: 048
  10. MUCODYNE [Concomitant]
     Indication: PNEUMONIA
     Dosage: UNK
     Route: 048
     Dates: start: 20130406, end: 20130411
  11. PASETOCIN                          /00249601/ [Concomitant]
     Indication: PNEUMONIA
     Dosage: UNK
     Route: 048
     Dates: start: 20130406, end: 20130411
  12. AUGMENTIN                          /00756801/ [Concomitant]
     Indication: PNEUMONIA
     Dosage: UNK
     Route: 048
     Dates: start: 20130406, end: 20130411

REACTIONS (3)
  - Death [Fatal]
  - Pneumonia [Recovered/Resolved]
  - Dizziness [Recovered/Resolved]
